FAERS Safety Report 15929044 (Version 8)
Quarter: 2022Q4

REPORT INFORMATION
  Report Type: Spontaneous
  Country: US (occurrence: None)
  Receive Date: 20190206
  Receipt Date: 20221124
  Transmission Date: 20230113
  Serious: Yes (Death, Other)
  Sender: FDA-Public Use
  Company Number: 2018SF14599

PATIENT
  Age: 18042 Day
  Sex: Male

DRUGS (59)
  1. PRILOSEC [Suspect]
     Active Substance: OMEPRAZOLE MAGNESIUM
     Indication: Gastrooesophageal reflux disease
     Route: 048
     Dates: start: 19890901, end: 20161201
  2. PRILOSEC [Suspect]
     Active Substance: OMEPRAZOLE MAGNESIUM
     Indication: Gastrooesophageal reflux disease
     Route: 048
     Dates: start: 20050925, end: 20161216
  3. PRILOSEC [Suspect]
     Active Substance: OMEPRAZOLE MAGNESIUM
     Indication: Gastrooesophageal reflux disease
     Dosage: 20.0MG UNKNOWN
     Route: 048
     Dates: start: 20110516
  4. PRILOSEC [Suspect]
     Active Substance: OMEPRAZOLE MAGNESIUM
     Indication: Gastrooesophageal reflux disease
     Dosage: GENERIC20.0MG UNKNOWN
     Route: 048
     Dates: start: 2013, end: 2014
  5. PREVACID [Suspect]
     Active Substance: LANSOPRAZOLE
     Indication: Gastrooesophageal reflux disease
     Route: 065
     Dates: start: 19950301, end: 20161201
  6. PREVACID [Suspect]
     Active Substance: LANSOPRAZOLE
     Indication: Gastrooesophageal reflux disease
     Route: 065
     Dates: start: 20050925, end: 20161216
  7. PREVACID 24 HR [Suspect]
     Active Substance: LANSOPRAZOLE
     Indication: Gastrooesophageal reflux disease
     Route: 065
     Dates: start: 20090501, end: 20161201
  8. PREVACID 24 HR [Suspect]
     Active Substance: LANSOPRAZOLE
     Indication: Gastrooesophageal reflux disease
     Route: 065
  9. PROTONIX [Suspect]
     Active Substance: PANTOPRAZOLE SODIUM
     Indication: Gastrooesophageal reflux disease
     Route: 065
     Dates: start: 2006, end: 2016
  10. PROTONIX [Suspect]
     Active Substance: PANTOPRAZOLE SODIUM
     Indication: Gastrooesophageal reflux disease
     Dosage: GENERIC
     Route: 065
     Dates: start: 2011, end: 2016
  11. ZOFRAN [Concomitant]
     Active Substance: ONDANSETRON HYDROCHLORIDE
     Route: 065
     Dates: start: 20110516
  12. PROGRAF [Concomitant]
     Active Substance: TACROLIMUS
     Route: 065
     Dates: start: 20110516
  13. LEFLUNOMIDE [Concomitant]
     Active Substance: LEFLUNOMIDE
     Route: 065
     Dates: start: 20110516
  14. ASPIRIN [Concomitant]
     Active Substance: ASPIRIN
     Route: 065
     Dates: start: 20110516
  15. SIMVASTATIN [Concomitant]
     Active Substance: SIMVASTATIN
     Route: 065
     Dates: start: 20110516
  16. TOPROL XL [Concomitant]
     Active Substance: METOPROLOL SUCCINATE
     Route: 065
     Dates: start: 20110516
  17. HUMALOG [Concomitant]
     Active Substance: INSULIN LISPRO
     Route: 065
     Dates: start: 20110516
  18. LANTUS [Concomitant]
     Active Substance: INSULIN GLARGINE
     Route: 065
     Dates: start: 20110516
  19. NORCO [Concomitant]
     Active Substance: ACETAMINOPHEN\HYDROCODONE BITARTRATE
     Route: 065
     Dates: start: 20160815
  20. SIMETHICONE (DIMETHICONE) [Concomitant]
     Active Substance: DIMETHICONE
     Route: 065
     Dates: start: 20160815
  21. BENADRYL [Concomitant]
     Active Substance: DIPHENHYDRAMINE HYDROCHLORIDE
     Route: 065
     Dates: start: 20160815
  22. PHOSLO [Concomitant]
     Active Substance: CALCIUM ACETATE
     Route: 065
     Dates: start: 20160815
  23. PLAVIX [Concomitant]
     Active Substance: CLOPIDOGREL BISULFATE
     Route: 065
     Dates: start: 20160815
  24. TIGAN [Concomitant]
     Active Substance: TRIMETHOBENZAMIDE HYDROCHLORIDE
     Route: 065
     Dates: start: 20160815
  25. HECTOROL [Concomitant]
     Active Substance: DOXERCALCIFEROL
     Route: 065
     Dates: start: 20160815
  26. EPOGEN [Concomitant]
     Active Substance: ERYTHROPOIETIN
     Route: 065
     Dates: start: 20160815
  27. LIPITOR [Concomitant]
     Active Substance: ATORVASTATIN CALCIUM
     Indication: Hyperlipidaemia
     Dates: start: 2005
  28. MYFORTIC [Concomitant]
     Active Substance: MYCOPHENOLATE SODIUM
  29. SERTRALINE [Concomitant]
     Active Substance: SERTRALINE HYDROCHLORIDE
  30. AMLODIPINE BESYLATE [Concomitant]
     Active Substance: AMLODIPINE BESYLATE
  31. RANITIDINE [Concomitant]
     Active Substance: RANITIDINE
     Dates: start: 2013, end: 2015
  32. NOREPINEPHRINE [Concomitant]
     Active Substance: NOREPINEPHRINE
  33. LORAZEPAM [Concomitant]
     Active Substance: LORAZEPAM
  34. ROBINUL [Concomitant]
     Active Substance: GLYCOPYRROLATE
  35. MIDAZOLAM [Concomitant]
     Active Substance: MIDAZOLAM
  36. ANCEF [Concomitant]
     Active Substance: CEFAZOLIN SODIUM
  37. BETAMETHASONE/KETOROLAC [Concomitant]
  38. MORPHINE [Concomitant]
     Active Substance: MORPHINE
  39. AMICAR [Concomitant]
     Active Substance: AMINOCAPROIC ACID
  40. NEPHROCAPS [Concomitant]
     Active Substance: ASCORBIC ACID\BIOTIN\CYANOCOBALAMIN\FOLIC ACID\NIACIN\PANTOTHENIC ACID\PYRIDOXINE\RIBOFLAVIN\THIAMIN
  41. SODIUM CHLORIDE [Concomitant]
     Active Substance: SODIUM CHLORIDE
  42. HEPARIN [Concomitant]
     Active Substance: HEPARIN SODIUM
  43. POTASSIUM SODIUM PHOSPHATE [Concomitant]
  44. FENTANYL [Concomitant]
     Active Substance: FENTANYL
  45. BACITRACIN [Concomitant]
     Active Substance: BACITRACIN
  46. BYDUREON [Concomitant]
     Active Substance: EXENATIDE
  47. HALDOL [Concomitant]
     Active Substance: HALOPERIDOL
  48. HYDRALAZINE [Concomitant]
     Active Substance: HYDRALAZINE HYDROCHLORIDE
  49. SALICYLIC ACID/ALTEPLASE/CAFFEINE [Concomitant]
  50. DEXTROSE [Concomitant]
     Active Substance: DEXTROSE
  51. GELATIN [Concomitant]
     Active Substance: GELATIN
  52. CLOPIDOGREL [Concomitant]
     Active Substance: CLOPIDOGREL BISULFATE
  53. PENTASA [Concomitant]
     Active Substance: MESALAMINE
  54. IOPAMIDOL [Concomitant]
     Active Substance: IOPAMIDOL
  55. TRAMADOL [Concomitant]
     Active Substance: TRAMADOL
     Indication: Pain
     Dates: start: 2014
  56. ATORVASTATIN [Concomitant]
     Active Substance: ATORVASTATIN
     Indication: Hyperlipidaemia
     Dates: start: 2005
  57. LOSARTAN [Concomitant]
     Active Substance: LOSARTAN
     Indication: Hypertension
     Dates: start: 2005, end: 2016
  58. LISINOPRIL [Concomitant]
     Active Substance: LISINOPRIL
     Indication: Hypertension
     Dates: start: 2005, end: 2016
  59. TYLENOL [Concomitant]
     Active Substance: ACETAMINOPHEN
     Indication: Headache

REACTIONS (9)
  - End stage renal disease [Fatal]
  - Myocardial infarction [Fatal]
  - Coronary artery disease [Fatal]
  - Acute kidney injury [Unknown]
  - Chronic kidney disease [Unknown]
  - Chronic kidney disease-mineral and bone disorder [Unknown]
  - Renal injury [Unknown]
  - Renal failure [Unknown]
  - Nephrogenic anaemia [Unknown]

NARRATIVE: CASE EVENT DATE: 20110918
